FAERS Safety Report 15775705 (Version 1)
Quarter: 2018Q4

REPORT INFORMATION
  Report Type: Spontaneous
  Country: US (occurrence: US)
  Receive Date: 20181231
  Receipt Date: 20181231
  Transmission Date: 20190205
  Serious: No
  Sender: FDA-Public Use
  Company Number: US-DRREDDYS-USA/USA/18/0096509

PATIENT
  Age: 59 Year
  Sex: Female

DRUGS (2)
  1. NICOTINE. [Suspect]
     Active Substance: NICOTINE
     Indication: SMOKING CESSATION THERAPY
     Route: 062
     Dates: start: 20180217, end: 20180219
  2. NICOTINE. [Suspect]
     Active Substance: NICOTINE
     Route: 062

REACTIONS (9)
  - Nausea [Recovered/Resolved]
  - Dysgeusia [Unknown]
  - Application site discolouration [Unknown]
  - Product dose omission [Unknown]
  - Product adhesion issue [Unknown]
  - Drug effect increased [Unknown]
  - Incorrect dose administered [Unknown]
  - Application site erythema [Recovered/Resolved]
  - Malaise [Unknown]

NARRATIVE: CASE EVENT DATE: 20180219
